FAERS Safety Report 4925202-7 (Version None)
Quarter: 2006Q1

REPORT INFORMATION
  Report Type: 
  Country: None (occurrence: None)
  Receive Date: 20060228
  Receipt Date: 20060126
  Transmission Date: 20060701
  Serious: No
  Sender: FDA-Public Use
  Company Number: US-GLAXOSMITHKLINE-A0591081A

PATIENT
  Age: 67 Year
  Sex: Male

DRUGS (4)
  1. AVODART [Suspect]
     Indication: BENIGN PROSTATIC HYPERPLASIA
     Dosage: .5MG PER DAY
     Route: 048
     Dates: start: 20060101
  2. FLOMAX [Concomitant]
  3. COUMADIN [Concomitant]
  4. LUNESTA [Concomitant]

REACTIONS (3)
  - FATIGUE [None]
  - INSOMNIA [None]
  - NOCTURIA [None]
